APPROVED DRUG PRODUCT: OXYBUTYNIN CHLORIDE
Active Ingredient: OXYBUTYNIN CHLORIDE
Strength: 5MG
Dosage Form/Route: TABLET, EXTENDED RELEASE;ORAL
Application: A206121 | Product #001 | TE Code: AB
Applicant: UNIQUE PHARMACEUTICAL LABORATORIES A DIV OF JB CHEMICALS AND PHARMACEUTICALS LTD
Approved: May 27, 2016 | RLD: No | RS: No | Type: RX